FAERS Safety Report 20505875 (Version 1)
Quarter: 2022Q1

REPORT INFORMATION
  Report Type: Spontaneous
  Country: KR (occurrence: KR)
  Receive Date: 20220223
  Receipt Date: 20220223
  Transmission Date: 20220424
  Serious: Yes (Hospitalization, Other)
  Sender: FDA-Public Use
  Company Number: KR-009507513-2202KOR006649

PATIENT
  Age: 65 Year
  Sex: Female
  Weight: 63.9 kg

DRUGS (24)
  1. KEYTRUDA [Suspect]
     Active Substance: PEMBROLIZUMAB
     Dosage: 200 MILLIGRAM, EVERY 3 WEEKS
     Route: 042
     Dates: start: 20180123, end: 20190105
  2. CARBOPLATIN [Suspect]
     Active Substance: CARBOPLATIN
     Indication: Non-small cell lung cancer
     Dosage: STRENGTH: 600MG/60 ML, 483 MG, Q3W
     Route: 042
     Dates: start: 20180123, end: 20180123
  3. CARBOPLATIN [Suspect]
     Active Substance: CARBOPLATIN
     Dosage: STRENGTH: 600MG/60 ML, 485 MG, Q3W
     Route: 042
     Dates: start: 20180212, end: 20180212
  4. CARBOPLATIN [Suspect]
     Active Substance: CARBOPLATIN
     Dosage: STRENGTH: 600MG/60 ML, 4 MG, Q3W
     Dates: start: 20180305, end: 20180305
  5. CARBOPLATIN [Suspect]
     Active Substance: CARBOPLATIN
     Dosage: STRENGTH: 600MG/60 ML, 481 MG, Q3W
     Route: 042
     Dates: start: 20180326, end: 20180326
  6. PEMETREXED DISODIUM HEMIPENTAHYDRATE [Suspect]
     Active Substance: PEMETREXED DISODIUM HEMIPENTAHYDRATE
     Indication: Non-small cell lung cancer
     Dosage: 830 MILLIGRAM, Q3W
     Route: 042
     Dates: start: 20180123, end: 20180123
  7. PEMETREXED DISODIUM HEMIPENTAHYDRATE [Suspect]
     Active Substance: PEMETREXED DISODIUM HEMIPENTAHYDRATE
     Dosage: 835 MILLIGRAM, Q3W
     Route: 042
     Dates: start: 201802, end: 20180212
  8. PEMETREXED DISODIUM HEMIPENTAHYDRATE [Suspect]
     Active Substance: PEMETREXED DISODIUM HEMIPENTAHYDRATE
     Dosage: 840 MILLIGRAM, Q3W
     Route: 042
     Dates: start: 20180305, end: 20180305
  9. PEMETREXED DISODIUM HEMIPENTAHYDRATE [Suspect]
     Active Substance: PEMETREXED DISODIUM HEMIPENTAHYDRATE
     Dosage: 830 MILLIGRAM, Q3W
     Route: 042
     Dates: start: 20180326, end: 20180326
  10. PEMETREXED DISODIUM HEMIPENTAHYDRATE [Suspect]
     Active Substance: PEMETREXED DISODIUM HEMIPENTAHYDRATE
     Dosage: 835 MILLIGRAM, Q3W
     Route: 042
     Dates: start: 20180416, end: 20180416
  11. PEMETREXED DISODIUM HEMIPENTAHYDRATE [Suspect]
     Active Substance: PEMETREXED DISODIUM HEMIPENTAHYDRATE
     Dosage: 795 MILLIGRAM, Q3W
     Route: 042
     Dates: start: 20180509, end: 20180509
  12. PEMETREXED DISODIUM HEMIPENTAHYDRATE [Suspect]
     Active Substance: PEMETREXED DISODIUM HEMIPENTAHYDRATE
     Dosage: 840 MILLIGRAM, Q3W
     Route: 042
     Dates: start: 20180531, end: 20180531
  13. PEMETREXED DISODIUM HEMIPENTAHYDRATE [Suspect]
     Active Substance: PEMETREXED DISODIUM HEMIPENTAHYDRATE
     Dosage: 830 MILLIGRAM, Q3W
     Route: 042
     Dates: start: 20180620, end: 20180620
  14. PEMETREXED DISODIUM HEMIPENTAHYDRATE [Suspect]
     Active Substance: PEMETREXED DISODIUM HEMIPENTAHYDRATE
     Dosage: 830 MILLIGRAM, Q3W
     Route: 042
     Dates: start: 20180711, end: 20180711
  15. PEMETREXED DISODIUM HEMIPENTAHYDRATE [Suspect]
     Active Substance: PEMETREXED DISODIUM HEMIPENTAHYDRATE
     Dosage: 8 MILLIGRAM, Q3W
     Dates: start: 20180802, end: 20180802
  16. PEMETREXED DISODIUM HEMIPENTAHYDRATE [Suspect]
     Active Substance: PEMETREXED DISODIUM HEMIPENTAHYDRATE
     Dosage: 835 MILLIGRAM, Q3W
     Route: 042
     Dates: start: 20180823, end: 20180823
  17. PEMETREXED DISODIUM HEMIPENTAHYDRATE [Suspect]
     Active Substance: PEMETREXED DISODIUM HEMIPENTAHYDRATE
     Dosage: 830 MILLIGRAM, Q3W
     Route: 042
     Dates: start: 20180912, end: 20180912
  18. PEMETREXED DISODIUM HEMIPENTAHYDRATE [Suspect]
     Active Substance: PEMETREXED DISODIUM HEMIPENTAHYDRATE
     Dosage: 840 MILLIGRAM, Q3W
     Route: 042
     Dates: start: 20181005, end: 20181005
  19. PEMETREXED DISODIUM HEMIPENTAHYDRATE [Suspect]
     Active Substance: PEMETREXED DISODIUM HEMIPENTAHYDRATE
     Dosage: 830 MILLIGRAM, Q3W
     Dates: start: 20181026, end: 20181026
  20. PEMETREXED DISODIUM HEMIPENTAHYDRATE [Suspect]
     Active Substance: PEMETREXED DISODIUM HEMIPENTAHYDRATE
     Dosage: 840 MILLIGRAM, Q3W
     Route: 042
     Dates: start: 20181116, end: 20181116
  21. PEMETREXED DISODIUM HEMIPENTAHYDRATE [Suspect]
     Active Substance: PEMETREXED DISODIUM HEMIPENTAHYDRATE
     Dosage: 845 MILLIGRAM, Q3W
     Route: 042
     Dates: start: 20181214, end: 20181214
  22. PEMETREXED DISODIUM HEMIPENTAHYDRATE [Suspect]
     Active Substance: PEMETREXED DISODIUM HEMIPENTAHYDRATE
     Dosage: 8 MILLIGRAM, Q3W
     Dates: start: 20190105, end: 20190105
  23. FOLIC ACID [Concomitant]
     Active Substance: FOLIC ACID
     Indication: Prophylaxis
     Dosage: 1 MILLIGRAM, QD
     Route: 048
     Dates: start: 20180117
  24. LIPITOR [Concomitant]
     Active Substance: ATORVASTATIN CALCIUM
     Indication: Dyslipidaemia
     Dosage: 1 TABLET, QD
     Route: 048
     Dates: start: 20150807

REACTIONS (5)
  - Upper respiratory tract infection [Recovered/Resolved]
  - Upper respiratory tract infection [Recovered/Resolved]
  - Sinusitis [Recovered/Resolved]
  - Pneumonia [Recovered/Resolved]
  - Diarrhoea [Recovered/Resolved]

NARRATIVE: CASE EVENT DATE: 20190204
